FAERS Safety Report 10045723 (Version 1)
Quarter: 2014Q1

REPORT INFORMATION
  Report Type: Spontaneous
  Country: US (occurrence: None)
  Receive Date: 20140306
  Receipt Date: 20140306
  Transmission Date: 20141002
  Serious: Yes (Other)
  Sender: FDA-Public Use
  Company Number: 163-21880-13054959

PATIENT
  Age: 88 Year
  Sex: Female
  Weight: 67.13 kg

DRUGS (1)
  1. REVLIMID (LENALIDOMIDE) (10 MILLIGRAM CAPSULES) [Suspect]
     Indication: PLASMA CELL MYELOMA
     Dosage: 10MG, 1 IN 1D, PO  PERMANENTLY DISCONTINUED
     Route: 048
     Dates: start: 20100819

REACTIONS (1)
  - Rash [None]
